FAERS Safety Report 19179399 (Version 1)
Quarter: 2021Q2

REPORT INFORMATION
  Report Type: Spontaneous
  Country: US (occurrence: US)
  Receive Date: 20210423
  Receipt Date: 20210423
  Transmission Date: 20210717
  Serious: Yes (Other)
  Sender: FDA-Public Use
  Company Number: None

PATIENT
  Age: 74 Year
  Sex: Female

DRUGS (12)
  1. CALCIUM 500 500MG CALCIUM (1,250MG) TABLET [Concomitant]
  2. MAGNESIUM 250MG TABLET [Concomitant]
  3. METOPROLOL TARTRATE 100MG TABLET [Concomitant]
     Active Substance: METOPROLOL TARTRATE
  4. JUXTAPID [Suspect]
     Active Substance: LOMITAPIDE MESYLATE
     Indication: HYPERCHOLESTEROLAEMIA
     Dosage: ?          OTHER FREQUENCY:2 HRS POST?DINNER;?
     Route: 048
  5. ASPIR?81 81MG DELAYED RELEASE TABLET [Concomitant]
  6. SUPER OMEGA?3 CAPSULE [Concomitant]
  7. HYDROCODONE?APAP 5/325MG TABLET [Concomitant]
  8. AMLODIPINE [Concomitant]
     Active Substance: AMLODIPINE BESYLATE
  9. TYLENOL 325MG TABLET [Concomitant]
  10. VTIAMIN E 400 IU CAPSULE [Concomitant]
  11. LEVOTHYROXINE 100MCG TABLET [Concomitant]
  12. LEXAPRO 10MG TABLET [Concomitant]

REACTIONS (1)
  - Glaucoma [None]

NARRATIVE: CASE EVENT DATE: 20210423
